FAERS Safety Report 6336885-1 (Version None)
Quarter: 2009Q3

REPORT INFORMATION
  Report Type: 
  Country: None (occurrence: None)
  Receive Date: 20090901
  Receipt Date: 20090820
  Transmission Date: 20100115
  Serious: Yes (Hospitalization)
  Sender: FDA-Public Use
  Company Number: PHHY2009BR35359

PATIENT
  Sex: Female

DRUGS (5)
  1. FORASEQ [Suspect]
     Indication: ASTHMA
  2. FORADIL [Suspect]
     Indication: ASTHMA
  3. VERMIFUGE [Concomitant]
  4. ANTIBIOTICS [Concomitant]
  5. SYNTHROID [Concomitant]

REACTIONS (2)
  - ACUTE RESPIRATORY FAILURE [None]
  - HYPERSENSITIVITY [None]
